FAERS Safety Report 6128372-0 (Version None)
Quarter: 2009Q1

REPORT INFORMATION
  Report Type: 
  Country: None (occurrence: None)
  Receive Date: 20090323
  Receipt Date: 20090317
  Transmission Date: 20090719
  Serious: Yes (Other)
  Sender: FDA-Public Use
  Company Number: JP-ASTRAZENECA-2009SE01199

PATIENT
  Sex: Male

DRUGS (1)
  1. AMIAS 8MG TABLETS [Suspect]
     Indication: HYPERTENSION
     Route: 048

REACTIONS (4)
  - FATIGUE [None]
  - GRIP STRENGTH DECREASED [None]
  - MYALGIA [None]
  - MYOPATHY [None]
